FAERS Safety Report 9494388 (Version 1)
Quarter: 2013Q3

REPORT INFORMATION
  Report Type: Spontaneous
  Country: US (occurrence: None)
  Receive Date: 20130828
  Receipt Date: 20130828
  Transmission Date: 20140515
  Serious: Yes (Other)
  Sender: FDA-Public Use
  Company Number: JPI-P-034778

PATIENT
  Age: 40 Year
  Sex: Female
  Weight: 55.79 kg

DRUGS (2)
  1. XYREM [Suspect]
     Indication: SOMNOLENCE
     Dosage: 4.5GM (2.25GM, 2 IN 1D) ORAL
     Route: 048
     Dates: start: 20130105
  2. STIMULANTS [Concomitant]

REACTIONS (3)
  - Extra dose administered [None]
  - Dyspnoea [None]
  - Unresponsive to stimuli [None]
